FAERS Safety Report 7386024-3 (Version None)
Quarter: 2011Q1

REPORT INFORMATION
  Report Type: 
  Country: None (occurrence: None)
  Receive Date: 20110331
  Receipt Date: 20110321
  Transmission Date: 20110831
  Serious: Yes (Other)
  Sender: FDA-Public Use
  Company Number: IL-JNJFOC-20110310666

PATIENT
  Age: 20 Year
  Sex: Female

DRUGS (4)
  1. TOPAMAX [Suspect]
     Indication: EPILEPSY
     Route: 048
  2. TOPAMAX [Suspect]
     Indication: CARDIAC FAILURE
     Route: 048
  3. KALURIL [Concomitant]
     Indication: OEDEMA
     Route: 065
  4. COZAAR [Concomitant]
     Indication: OEDEMA
     Route: 065

REACTIONS (4)
  - LACTOSE INTOLERANCE [None]
  - HYPERSENSITIVITY [None]
  - HAEMORRHAGIC DIATHESIS [None]
  - FOOD ALLERGY [None]
